FAERS Safety Report 20732257 (Version 2)
Quarter: 2022Q2

REPORT INFORMATION
  Report Type: Report from Study
  Country: US (occurrence: US)
  Receive Date: 20220420
  Receipt Date: 20220509
  Transmission Date: 20220721
  Serious: Yes (Hospitalization)
  Sender: FDA-Public Use
  Company Number: US-TAKEDA-2022TUS026181

PATIENT
  Age: 79 Year
  Sex: Male
  Weight: 74 kg

DRUGS (42)
  1. ANTIHEMOPHILIC FACTOR PORCINE, B-DOMAIN TRUNCATED RECOMBINANT [Suspect]
     Active Substance: ANTIHEMOPHILIC FACTOR PORCINE, B-DOMAIN TRUNCATED RECOMBINANT
     Indication: Acquired haemophilia
     Dosage: 150 MILLIGRAM/KILOGRAM, Q12H
     Route: 042
     Dates: start: 20200123, end: 20200123
  2. ANTIHEMOPHILIC FACTOR PORCINE, B-DOMAIN TRUNCATED RECOMBINANT [Suspect]
     Active Substance: ANTIHEMOPHILIC FACTOR PORCINE, B-DOMAIN TRUNCATED RECOMBINANT
     Indication: Acquired haemophilia
     Dosage: 150 MILLIGRAM/KILOGRAM, Q12H
     Route: 042
     Dates: start: 20200123, end: 20200123
  3. ANTIHEMOPHILIC FACTOR PORCINE, B-DOMAIN TRUNCATED RECOMBINANT [Suspect]
     Active Substance: ANTIHEMOPHILIC FACTOR PORCINE, B-DOMAIN TRUNCATED RECOMBINANT
     Dosage: 100 MILLIGRAM/KILOGRAM, Q12H
     Route: 042
     Dates: start: 20200202, end: 20200204
  4. ANTIHEMOPHILIC FACTOR PORCINE, B-DOMAIN TRUNCATED RECOMBINANT [Suspect]
     Active Substance: ANTIHEMOPHILIC FACTOR PORCINE, B-DOMAIN TRUNCATED RECOMBINANT
     Dosage: 100 MILLIGRAM/KILOGRAM, Q12H
     Route: 042
     Dates: start: 20200202, end: 20200204
  5. ANTIHEMOPHILIC FACTOR PORCINE, B-DOMAIN TRUNCATED RECOMBINANT [Suspect]
     Active Substance: ANTIHEMOPHILIC FACTOR PORCINE, B-DOMAIN TRUNCATED RECOMBINANT
     Dosage: 100 MILLIGRAM/KILOGRAM, Q12H
     Route: 042
     Dates: start: 20200124, end: 20200124
  6. ANTIHEMOPHILIC FACTOR PORCINE, B-DOMAIN TRUNCATED RECOMBINANT [Suspect]
     Active Substance: ANTIHEMOPHILIC FACTOR PORCINE, B-DOMAIN TRUNCATED RECOMBINANT
     Dosage: 100 MILLIGRAM/KILOGRAM, Q12H
     Route: 042
     Dates: start: 20200124, end: 20200124
  7. TAMSULOSIN [Concomitant]
     Active Substance: TAMSULOSIN
     Dosage: 1 DOSAGE FORM, QD
     Route: 048
  8. TAMSULOSIN [Concomitant]
     Active Substance: TAMSULOSIN
     Dosage: 0.4 MILLIGRAM, QD
     Route: 048
     Dates: start: 20200629, end: 20200629
  9. ATORVASTATIN [Concomitant]
     Active Substance: ATORVASTATIN
     Dosage: 1 DOSAGE FORM, QD
     Route: 048
  10. ATORVASTATIN [Concomitant]
     Active Substance: ATORVASTATIN
     Dosage: 20 MILLIGRAM, QD
     Route: 048
  11. MYCOPHENOLATE MOFETIL [Concomitant]
     Active Substance: MYCOPHENOLATE MOFETIL
     Dosage: 1 DOSAGE FORM, QD
     Route: 048
  12. MYCOPHENOLATE MOFETIL [Concomitant]
     Active Substance: MYCOPHENOLATE MOFETIL
     Dosage: 500 MILLIGRAM, QD
     Route: 048
     Dates: start: 20200629, end: 20200702
  13. LIDOCAINE\PRILOCAINE [Concomitant]
     Active Substance: LIDOCAINE\PRILOCAINE
     Dosage: UNK
     Route: 061
  14. LORAZEPAM [Concomitant]
     Active Substance: LORAZEPAM
     Indication: Anxiety
     Dosage: 1 DOSAGE FORM, Q8HR
     Route: 048
     Dates: start: 20200629, end: 20200629
  15. LORAZEPAM [Concomitant]
     Active Substance: LORAZEPAM
     Dosage: 1 MILLIGRAM, Q8HR
     Route: 048
  16. DRONABINOL [Concomitant]
     Active Substance: DRONABINOL
     Dosage: 1 DOSAGE FORM, BID
     Route: 048
  17. DRONABINOL [Concomitant]
     Active Substance: DRONABINOL
     Dosage: 10 MILLIGRAM, BID
     Route: 048
     Dates: start: 20200629, end: 20200702
  18. XELODA [Concomitant]
     Active Substance: CAPECITABINE
     Dosage: 3 DOSAGE FORM, Q12H
     Route: 048
  19. ESOMEPRAZOLE [Concomitant]
     Active Substance: ESOMEPRAZOLE
     Dosage: 1 DOSAGE FORM, QD
     Route: 048
  20. ALBUTEROL [Concomitant]
     Active Substance: ALBUTEROL
     Dosage: 2 DOSAGE FORM, Q6HR
     Route: 055
     Dates: start: 20200629, end: 20200702
  21. STIOLTO RESPIMAT [Concomitant]
     Active Substance: OLODATEROL HYDROCHLORIDE\TIOTROPIUM BROMIDE MONOHYDRATE
     Dosage: UNK
     Route: 055
  22. ACETAMINOPHEN [Concomitant]
     Active Substance: ACETAMINOPHEN
     Dosage: 2 DOSAGE FORM, Q6HR
     Route: 048
  23. ACETAMINOPHEN [Concomitant]
     Active Substance: ACETAMINOPHEN
     Dosage: 650 MILLIGRAM, Q6HR
     Route: 048
     Dates: start: 20200629
  24. DEXTROSE\SODIUM CHLORIDE [Concomitant]
     Active Substance: DEXTROSE\SODIUM CHLORIDE
     Dosage: UNK
     Route: 042
  25. POTASSIUM CHLORIDE [Concomitant]
     Active Substance: POTASSIUM CHLORIDE
     Dosage: UNK
     Route: 065
     Dates: start: 20200629, end: 20200629
  26. HEPARIN [Concomitant]
     Active Substance: HEPARIN SODIUM
     Dosage: 5000 INTERNATIONAL UNIT, Q8HR
     Route: 042
     Dates: start: 20200629, end: 20200702
  27. HEPARIN [Concomitant]
     Active Substance: HEPARIN SODIUM
     Dosage: 5000 INTERNATIONAL UNIT, Q8HR
     Route: 058
  28. LACTOBACILLUS ACID [Concomitant]
     Dosage: 1 DOSAGE FORM, QD
     Route: 048
  29. PANTOPRAZOLE [Concomitant]
     Active Substance: PANTOPRAZOLE
     Dosage: 40 MILLIGRAM, QD
     Route: 048
     Dates: start: 20200629, end: 20200630
  30. PIPERACILLIN AND TAZOBACTAM [Concomitant]
     Active Substance: PIPERACILLIN SODIUM\TAZOBACTAM SODIUM
     Dosage: 50 MILLILITER, Q6HR
     Route: 042
     Dates: start: 20200629, end: 20200629
  31. PIPERACILLIN AND TAZOBACTAM [Concomitant]
     Active Substance: PIPERACILLIN SODIUM\TAZOBACTAM SODIUM
     Dosage: 50 MILLILITER, Q6HR
     Route: 042
     Dates: start: 20200702, end: 20200702
  32. TIOTROPIUM [Concomitant]
     Active Substance: TIOTROPIUM
     Dosage: 1 DOSAGE FORM, QD
     Route: 055
     Dates: start: 20200629, end: 20200702
  33. VANCOMYCIN [Concomitant]
     Active Substance: VANCOMYCIN
     Dosage: 1 GRAM, QD
     Route: 042
     Dates: start: 20200629, end: 20200629
  34. BENZONATATE [Concomitant]
     Active Substance: BENZONATATE
     Dosage: 100 MILLIGRAM, TID
     Route: 048
     Dates: start: 20200629, end: 20200629
  35. ONDANSETRON [Concomitant]
     Active Substance: ONDANSETRON
     Indication: Nausea
     Dosage: 4 MILLIGRAM, Q4HR
     Route: 042
     Dates: start: 20200629, end: 20200702
  36. ONDANSETRON [Concomitant]
     Active Substance: ONDANSETRON
     Indication: Vomiting
  37. ZINC OXIDE [Concomitant]
     Active Substance: ZINC OXIDE
     Dosage: 1 DOSAGE FORM, TID
     Route: 061
     Dates: start: 20200630, end: 20200702
  38. SODIUM CHLORIDE [Concomitant]
     Active Substance: SODIUM CHLORIDE
     Dosage: 10 MILLILITER, Q8HR
     Route: 042
  39. SODIUM CHLORIDE [Concomitant]
     Active Substance: SODIUM CHLORIDE
     Dosage: 1000 MILLILITER, SINGLE
     Route: 065
     Dates: start: 20200629, end: 20200629
  40. HEPARIN SODIUM [Concomitant]
     Active Substance: HEPARIN SODIUM
     Dosage: 5 MILLILITER, Q8HR
     Route: 042
  41. HEPARIN SODIUM [Concomitant]
     Active Substance: HEPARIN SODIUM
     Dosage: 5 MILLILITER, QD
     Route: 042
  42. ALTEPLASE [Concomitant]
     Active Substance: ALTEPLASE
     Dosage: UNK
     Dates: start: 20200701, end: 20200701

REACTIONS (3)
  - Asthenia [Recovered/Resolved]
  - Cough [Recovered/Resolved]
  - Dyspnoea [Recovered/Resolved]

NARRATIVE: CASE EVENT DATE: 20200629
